FAERS Safety Report 15530672 (Version 1)
Quarter: 2018Q4

REPORT INFORMATION
  Report Type: Not Available
  Country: US (occurrence: US)
  Receive Date: 20181018
  Receipt Date: 20181018
  Transmission Date: 20190205
  Serious: Yes (Other)
  Sender: FDA-Public Use
  Company Number: US-NEUROCRINE BIOSCIENCES INC.-2018NBI02986

PATIENT
  Sex: Female

DRUGS (20)
  1. INGREZZA [Suspect]
     Active Substance: VALBENAZINE
     Route: 048
     Dates: start: 20180522, end: 2018
  2. CLONIDINE. [Concomitant]
     Active Substance: CLONIDINE
     Indication: CYCLIC VOMITING SYNDROME
     Dosage: 0.1 MG/24 H PATCH
  3. QUETIAPINE. [Concomitant]
     Active Substance: QUETIAPINE
     Indication: CYCLIC VOMITING SYNDROME
  4. SUCRALFATE. [Concomitant]
     Active Substance: SUCRALFATE
     Indication: CYCLIC VOMITING SYNDROME
  5. ASPIRIN 81 [Concomitant]
     Active Substance: ASPIRIN
     Indication: CARDIOVASCULAR DISORDER
  6. NOVOLOG [Concomitant]
     Active Substance: INSULIN ASPART
     Indication: DIABETES MELLITUS
     Dosage: PER SLIDING SCALE
  7. PROTONIX [Concomitant]
     Active Substance: PANTOPRAZOLE SODIUM
     Indication: CYCLIC VOMITING SYNDROME
  8. SUMATRIPTAN. [Concomitant]
     Active Substance: SUMATRIPTAN
     Indication: HEADACHE
  9. AMITRIPTYLINE [Concomitant]
     Active Substance: AMITRIPTYLINE
     Indication: CYCLIC VOMITING SYNDROME
  10. FUROSEMIDE. [Concomitant]
     Active Substance: FUROSEMIDE
     Indication: HYPERKALAEMIA
  11. PROTONIX [Concomitant]
     Active Substance: PANTOPRAZOLE SODIUM
     Indication: GASTROOESOPHAGEAL REFLUX DISEASE
  12. QUETIAPINE. [Concomitant]
     Active Substance: QUETIAPINE
     Indication: TARDIVE DYSKINESIA
  13. INGREZZA [Suspect]
     Active Substance: VALBENAZINE
     Indication: TARDIVE DYSKINESIA
     Route: 048
     Dates: start: 201707, end: 20180521
  14. LANTUS SOLOSTAR [Concomitant]
     Active Substance: INSULIN GLARGINE
     Indication: DIABETES MELLITUS
     Dosage: 12 UNITS AT BEDTIME
  15. LYRICA [Concomitant]
     Active Substance: PREGABALIN
     Indication: DIABETIC NEUROPATHY
  16. ZOLPIDEM [Concomitant]
     Active Substance: ZOLPIDEM\ZOLPIDEM TARTRATE
     Indication: INSOMNIA
  17. ATORVASTATIN [Concomitant]
     Active Substance: ATORVASTATIN
     Indication: CARDIOVASCULAR DISORDER
  18. CLONIDINE. [Concomitant]
     Active Substance: CLONIDINE
     Indication: BLOOD PRESSURE MEASUREMENT
  19. CYPROHEPTADINE. [Concomitant]
     Active Substance: CYPROHEPTADINE
     Indication: CYCLIC VOMITING SYNDROME
  20. DOCUSATE [Concomitant]
     Active Substance: DOCUSATE
     Indication: CONSTIPATION

REACTIONS (1)
  - Chronic kidney disease [Not Recovered/Not Resolved]
